FAERS Safety Report 5410862-7 (Version None)
Quarter: 2007Q3

REPORT INFORMATION
  Report Type: 
  Country: None (occurrence: None)
  Receive Date: 20070810
  Receipt Date: 20070802
  Transmission Date: 20080115
  Serious: Yes (Life-Threatening, Hospitalization)
  Sender: FDA-Public Use
  Company Number: JP-JNJFOC-20070701453

PATIENT
  Sex: Female

DRUGS (11)
  1. RISPERDAL [Suspect]
     Route: 048
  2. RISPERDAL [Suspect]
     Route: 048
  3. RISPERDAL [Suspect]
     Route: 048
  4. RISPERDAL [Suspect]
     Indication: SCHIZOPHRENIA
     Route: 048
  5. RISPERDAL [Suspect]
     Route: 048
  6. BIPERIDEN HYDROCHLORIDE TAB [Concomitant]
     Indication: PROPHYLAXIS
     Route: 048
  7. FLUNITRAZEPAM [Concomitant]
     Indication: INSOMNIA
     Route: 048
  8. CARBAMAZEPINE [Concomitant]
     Route: 048
  9. CARBAMAZEPINE [Concomitant]
     Indication: SCHIZOPHRENIA
     Route: 048
  10. OLANZAPINE [Concomitant]
     Indication: SCHIZOPHRENIA
     Route: 048
  11. PROMETHAZINE [Concomitant]
     Indication: PARKINSONISM
     Route: 048

REACTIONS (6)
  - DELUSION [None]
  - DRUG ERUPTION [None]
  - HALLUCINATION [None]
  - RESTLESSNESS [None]
  - STEVENS-JOHNSON SYNDROME [None]
  - SUICIDE ATTEMPT [None]
